FAERS Safety Report 17565698 (Version 1)
Quarter: 2020Q1

REPORT INFORMATION
  Report Type: Spontaneous
  Country: NL (occurrence: CZ)
  Receive Date: 20200320
  Receipt Date: 20200320
  Transmission Date: 20200409
  Serious: Yes (Other)
  Sender: FDA-Public Use
  Company Number: CZ-FRESENIUS KABI-FK202002692

PATIENT
  Sex: Male

DRUGS (5)
  1. BEVACIZUMAB. [Suspect]
     Active Substance: BEVACIZUMAB
     Indication: INTESTINAL ADENOCARCINOMA
     Route: 065
     Dates: start: 201710, end: 201810
  2. TRIFLURIDINE. [Suspect]
     Active Substance: TRIFLURIDINE
     Indication: INTESTINAL ADENOCARCINOMA
     Dosage: 3RD LINE OF THERAPY
     Route: 065
     Dates: start: 201710, end: 201810
  3. LEUCOVORIN CALCIUM (MANUFACTURER UNKNOWN) [Suspect]
     Active Substance: LEUCOVORIN CALCIUM
     Indication: INTESTINAL ADENOCARCINOMA
     Route: 065
     Dates: start: 201710, end: 201810
  4. FLUOROURACIL. [Suspect]
     Active Substance: FLUOROURACIL
     Indication: INTESTINAL ADENOCARCINOMA
     Route: 065
     Dates: start: 201710, end: 201810
  5. IRINOTECAN [Suspect]
     Active Substance: IRINOTECAN
     Indication: INTESTINAL ADENOCARCINOMA
     Route: 065
     Dates: start: 201710, end: 201810

REACTIONS (2)
  - Neutropenia [Unknown]
  - Palmar-plantar erythrodysaesthesia syndrome [Unknown]
